FAERS Safety Report 10621534 (Version 1)
Quarter: 2014Q4

REPORT INFORMATION
  Report Type: Spontaneous
  Country: US (occurrence: None)
  Receive Date: 20141126
  Receipt Date: 20141126
  Transmission Date: 20150529
  Serious: Yes (Disabling, Other)
  Sender: FDA-Public Use
  Company Number: None

PATIENT
  Age: 31 Year
  Sex: Female
  Weight: 46.72 kg

DRUGS (1)
  1. MIRVASO [Suspect]
     Active Substance: BRIMONIDINE TARTRATE
     Indication: ROSACEA
     Dosage: CREAM ONCE DAILY APPLIED TO A SURFACE, USUALLY THE SKIN,

REACTIONS (13)
  - Flushing [None]
  - Eating disorder [None]
  - Ocular rosacea [None]
  - Impaired work ability [None]
  - Skin discolouration [None]
  - Discomfort [None]
  - Trigeminal neuralgia [None]
  - Asthenia [None]
  - Erythema [None]
  - Ocular discomfort [None]
  - Anger [None]
  - Product quality issue [None]
  - Pain [None]

NARRATIVE: CASE EVENT DATE: 20131113
